FAERS Safety Report 15498925 (Version 1)
Quarter: 2018Q4

REPORT INFORMATION
  Report Type: Other
  Country: FR (occurrence: FR)
  Receive Date: 20181015
  Receipt Date: 20181015
  Transmission Date: 20190205
  Serious: Yes (Life-Threatening, Other)
  Sender: FDA-Public Use
  Company Number: FR-APOTEX-2018AP022543

PATIENT
  Age: 79 Year
  Sex: Male

DRUGS (2)
  1. SERESTA [Suspect]
     Active Substance: OXAZEPAM
     Indication: GENERALISED ANXIETY DISORDER
     Dosage: 1 DF, QD
     Route: 048
     Dates: start: 2018
  2. PAROXETINE. [Suspect]
     Active Substance: PAROXETINE
     Indication: GENERALISED ANXIETY DISORDER
     Dosage: 1 DF, QD
     Route: 048
     Dates: start: 2018, end: 20180816

REACTIONS (5)
  - Anxiety [Recovered/Resolved]
  - Major depression [Recovered/Resolved]
  - Asthenia [Recovered/Resolved]
  - Suicide attempt [Recovered/Resolved with Sequelae]
  - Hyponatraemia [Recovering/Resolving]

NARRATIVE: CASE EVENT DATE: 20180816
